FAERS Safety Report 15670142 (Version 1)
Quarter: 2018Q4

REPORT INFORMATION
  Report Type: Spontaneous
  Country: FR (occurrence: FR)
  Receive Date: 20181129
  Receipt Date: 20181129
  Transmission Date: 20190205
  Serious: Yes (Death)
  Sender: FDA-Public Use
  Company Number: FR-ASTRAZENECA-2018SF53637

PATIENT
  Age: 76 Year
  Sex: Male
  Weight: 73 kg

DRUGS (11)
  1. PANTOPRAZOLE [Concomitant]
     Active Substance: PANTOPRAZOLE
  2. BRILIQUE [Suspect]
     Active Substance: TICAGRELOR
     Indication: PROPHYLAXIS
     Route: 048
     Dates: start: 20170924, end: 20180217
  3. KARDEGIC [Suspect]
     Active Substance: ASPIRIN DL-LYSINE
     Indication: PROPHYLAXIS
     Route: 048
     Dates: end: 20180217
  4. IMOVANE [Concomitant]
     Active Substance: ZOPICLONE
  5. FUROSEMIDE. [Concomitant]
     Active Substance: FUROSEMIDE
  6. QUESTRAN [Concomitant]
     Active Substance: CHOLESTYRAMINE
  7. CORGARD [Concomitant]
     Active Substance: NADOLOL
  8. TAHOR [Concomitant]
     Active Substance: ATORVASTATIN CALCIUM
  9. RAMIPRIL. [Concomitant]
     Active Substance: RAMIPRIL
  10. PREDNISONE. [Suspect]
     Active Substance: PREDNISONE
     Indication: HYPERTHYROIDISM
     Route: 048
  11. NEO-MERCAZOLE [Concomitant]
     Active Substance: CARBIMAZOLE

REACTIONS (3)
  - Shock haemorrhagic [Fatal]
  - Gastric ulcer haemorrhage [Fatal]
  - Anaemia [Fatal]

NARRATIVE: CASE EVENT DATE: 20180217
